FAERS Safety Report 9557439 (Version 1)
Quarter: 2013Q3

REPORT INFORMATION
  Report Type: Spontaneous
  Country: US (occurrence: None)
  Receive Date: 20130726
  Receipt Date: 20130726
  Transmission Date: 20140515
  Serious: Yes (Hospitalization)
  Sender: FDA-Public Use
  Company Number: UTC-019610

PATIENT
  Age: 55 Year
  Sex: Female
  Weight: 72.72 kg

DRUGS (3)
  1. TYVASO [Suspect]
     Indication: PULMONARY HYPERTENSION
     Dosage: 18-54 MCGS (4 IN 1 D)
     Route: 055
     Dates: start: 20100315
  2. REVATIO (SILDENAFIL CITRATE) [Concomitant]
  3. LETAIRIS (AMBRISENTAN) (TABLETS) [Concomitant]

REACTIONS (1)
  - Pneumonia [None]
